FAERS Safety Report 9748256 (Version 1)
Quarter: 2013Q4

REPORT INFORMATION
  Report Type: Spontaneous
  Country: FR (occurrence: FR)
  Receive Date: 20131212
  Receipt Date: 20131212
  Transmission Date: 20140711
  Serious: Yes (Hospitalization)
  Sender: FDA-Public Use
  Company Number: FR-JNJFOC-20131205381

PATIENT
  Age: 80 Year
  Sex: Male

DRUGS (8)
  1. XARELTO [Suspect]
     Indication: CEREBROVASCULAR ACCIDENT PROPHYLAXIS
     Route: 048
     Dates: start: 20131005, end: 201310
  2. XARELTO [Suspect]
     Indication: CEREBROVASCULAR ACCIDENT PROPHYLAXIS
     Route: 048
     Dates: start: 201302, end: 20131004
  3. XARELTO [Suspect]
     Indication: ARRHYTHMIA SUPRAVENTRICULAR
     Route: 048
     Dates: start: 20131005, end: 201310
  4. XARELTO [Suspect]
     Indication: ARRHYTHMIA SUPRAVENTRICULAR
     Route: 048
     Dates: start: 201302, end: 20131004
  5. SERESTA [Concomitant]
     Route: 065
     Dates: start: 201302
  6. HEMIGOXINE [Concomitant]
     Dosage: 4 TABLETS
     Route: 065
  7. PARIET [Concomitant]
     Route: 065
     Dates: start: 201210
  8. SERETIDE DISKUS [Concomitant]
     Route: 065
     Dates: start: 201302

REACTIONS (3)
  - Epistaxis [Recovered/Resolved]
  - Haemorrhagic anaemia [Unknown]
  - Condition aggravated [Recovered/Resolved]
